FAERS Safety Report 7816187-4 (Version None)
Quarter: 2011Q4

REPORT INFORMATION
  Report Type: 
  Country: None (occurrence: None)
  Receive Date: 20111015
  Receipt Date: 20111013
  Transmission Date: 20120403
  Serious: Yes (Hospitalization, Disabling)
  Sender: FDA-Public Use
  Company Number: DE-ROCHE-683627

PATIENT
  Sex: Female
  Weight: 160 kg

DRUGS (2)
  1. DOCETAXEL [Suspect]
     Indication: BREAST CANCER
     Dosage: LAST DOSE PRIOR TO SAE: 27 JAN 2010, DOSE 100, UNIT: 4
     Route: 042
  2. AVASTIN [Suspect]
     Indication: BREAST CANCER
     Dosage: LAST DOSE PRIOR TO SAE: 27 JAN 2010, DOSE 15, UNIT: 4
     Route: 042

REACTIONS (1)
  - MUCOSAL INFLAMMATION [None]
